FAERS Safety Report 16630903 (Version 1)
Quarter: 2019Q3

REPORT INFORMATION
  Report Type: Spontaneous
  Country: FR (occurrence: FR)
  Receive Date: 20190725
  Receipt Date: 20190725
  Transmission Date: 20191004
  Serious: Yes (Life-Threatening, Other)
  Sender: FDA-Public Use
  Company Number: FR-AUROBINDO-AUR-APL-2019-043176

PATIENT

DRUGS (5)
  1. VALIUM [Suspect]
     Active Substance: DIAZEPAM
     Indication: SCHIZOPHRENIA
     Dosage: UNK
     Route: 048
     Dates: start: 201905, end: 20190615
  2. CLOPIXOL [Suspect]
     Active Substance: ZUCLOPENTHIXOL
     Indication: SCHIZOPHRENIA
     Dosage: UNK (400MG/15J)
     Route: 048
     Dates: start: 20190522, end: 20190615
  3. NOZINAN [Suspect]
     Active Substance: LEVOMEPROMAZINE
     Indication: SCHIZOPHRENIA
     Dosage: 400 MILLIGRAM, DAILY
     Route: 048
     Dates: start: 201905, end: 20190615
  4. OLANZAPINE. [Suspect]
     Active Substance: OLANZAPINE
     Indication: SCHIZOPHRENIA
     Dosage: UNK (30MG/J)
     Route: 048
     Dates: start: 20190512, end: 20190615
  5. MIDAZOLAM [Suspect]
     Active Substance: MIDAZOLAM HYDROCHLORIDE
     Indication: SCHIZOPHRENIA
     Dosage: UNK
     Route: 041
     Dates: start: 20190615, end: 20190622

REACTIONS (1)
  - Colitis ischaemic [Recovered/Resolved with Sequelae]

NARRATIVE: CASE EVENT DATE: 20190615
